FAERS Safety Report 7819480-4 (Version None)
Quarter: 2011Q4

REPORT INFORMATION
  Report Type: 
  Country: None (occurrence: None)
  Receive Date: 20111018
  Receipt Date: 20110815
  Transmission Date: 20120403
  Serious: Yes (Other)
  Sender: FDA-Public Use
  Company Number: US-ASTRAZENECA-2011SE48924

PATIENT
  Sex: Female

DRUGS (2)
  1. SYMBICORT [Suspect]
     Dosage: 160/4.5 UG AT UNKNOWN FREQUENCY
     Route: 055
  2. BUPROPION HYDROCHLORIDE [Suspect]

REACTIONS (6)
  - DIABETES MELLITUS [None]
  - PNEUMONIA [None]
  - CONVULSION [None]
  - VITAMIN D DEFICIENCY [None]
  - MULTIPLE ALLERGIES [None]
  - HYPOGLYCAEMIA [None]
